FAERS Safety Report 4371862-1 (Version None)
Quarter: 2004Q2

REPORT INFORMATION
  Report Type: 
  Country: None (occurrence: None)
  Receive Date: 20040604
  Receipt Date: 20040604
  Transmission Date: 20050107
  Serious: Yes (Other)
  Sender: FDA-Public Use
  Company Number: None

PATIENT
  Age: 45 Year
  Sex: Male
  Weight: 73.4827 kg

DRUGS (5)
  1. OXYCONTIN [Suspect]
  2. LIPITOR [Concomitant]
  3. CELEBREX [Concomitant]
  4. ZOLOFT [Concomitant]
  5. PRILOSEC [Concomitant]

REACTIONS (2)
  - DRUG EFFECT DECREASED [None]
  - PHARMACEUTICAL PRODUCT COMPLAINT [None]
